FAERS Safety Report 9954563 (Version 2)
Quarter: 2014Q1

REPORT INFORMATION
  Report Type: Report from Study
  Country: US (occurrence: US)
  Receive Date: 20140304
  Receipt Date: 20140304
  Transmission Date: 20141002
  Serious: No
  Sender: FDA-Public Use
  Company Number: US-ABBVIE-13P-163-1051951-00

PATIENT
  Age: 73 Year
  Sex: Female

DRUGS (18)
  1. HUMIRA [Suspect]
     Indication: RHEUMATOID ARTHRITIS
     Dates: start: 20130214
  2. HUMIRA [Suspect]
     Dates: start: 20130502
  3. LASIX [Concomitant]
     Indication: PRODUCT USED FOR UNKNOWN INDICATION
     Dosage: 40 MG DAILY
  4. ALLOPURINOL [Concomitant]
     Indication: PRODUCT USED FOR UNKNOWN INDICATION
     Dosage: 400 MG DAILY
  5. PLAQUENIL [Concomitant]
     Indication: PRODUCT USED FOR UNKNOWN INDICATION
     Dosage: 200 MG DAILY
  6. FOLIC ACID [Concomitant]
     Indication: PRODUCT USED FOR UNKNOWN INDICATION
     Dosage: 2 MG DAILY
  7. VITAMIN D3 [Concomitant]
     Indication: PRODUCT USED FOR UNKNOWN INDICATION
     Dosage: 2000 UNITS DAILY
  8. LOVASTATIN [Concomitant]
     Indication: PRODUCT USED FOR UNKNOWN INDICATION
     Dosage: 10 MG DAILY
  9. ATENOLOL [Concomitant]
     Indication: PRODUCT USED FOR UNKNOWN INDICATION
     Dosage: 10 MG DAILY
  10. OMEPRAZOLE [Concomitant]
     Indication: PRODUCT USED FOR UNKNOWN INDICATION
     Dosage: 20 MG DAILY
  11. POTASSIUM [Concomitant]
     Indication: PRODUCT USED FOR UNKNOWN INDICATION
     Dosage: 30 MEQ DAILY
  12. UNKNOWN GERD PILL [Concomitant]
     Indication: PRODUCT USED FOR UNKNOWN INDICATION
     Dosage: ONE
  13. PREDNISONE [Concomitant]
     Indication: PRODUCT USED FOR UNKNOWN INDICATION
  14. PREDNISONE [Concomitant]
     Dosage: DAILY
  15. LEVOTHYROXINE [Concomitant]
     Indication: HYPOTHYROIDISM
     Dosage: DAILY
  16. VICODIN [Concomitant]
     Indication: PAIN
     Dosage: 5/500
  17. NEUROTIN [Concomitant]
     Indication: PAIN
  18. FLEXERIL [Concomitant]
     Indication: PAIN

REACTIONS (24)
  - Fatigue [Not Recovered/Not Resolved]
  - Oropharyngeal pain [Not Recovered/Not Resolved]
  - Fatigue [Not Recovered/Not Resolved]
  - Injection site pruritus [Not Recovered/Not Resolved]
  - Lymphadenopathy [Not Recovered/Not Resolved]
  - Pain [Not Recovered/Not Resolved]
  - Upper respiratory tract infection [Not Recovered/Not Resolved]
  - Lacrimation increased [Not Recovered/Not Resolved]
  - Laryngitis [Not Recovered/Not Resolved]
  - Headache [Not Recovered/Not Resolved]
  - Gallbladder pain [Not Recovered/Not Resolved]
  - Chest pain [Not Recovered/Not Resolved]
  - Bronchitis [Recovered/Resolved]
  - Tendon injury [Not Recovered/Not Resolved]
  - Pain in extremity [Not Recovered/Not Resolved]
  - Muscular weakness [Not Recovered/Not Resolved]
  - Sensory disturbance [Not Recovered/Not Resolved]
  - Muscular weakness [Unknown]
  - Fall [Unknown]
  - Cyst [Unknown]
  - Cough [Unknown]
  - Confusional state [Unknown]
  - Vision blurred [Unknown]
  - Eye pruritus [Unknown]
